FAERS Safety Report 7318411-3 (Version None)
Quarter: 2011Q1

REPORT INFORMATION
  Report Type: 
  Country: None (occurrence: None)
  Receive Date: 20110228
  Receipt Date: 20110221
  Transmission Date: 20110831
  Serious: Yes (Death, Life-Threatening, Hospitalization, Other)
  Sender: FDA-Public Use
  Company Number: DE-ELI_LILLY_AND_COMPANY-DE201102005518

PATIENT
  Sex: Female

DRUGS (9)
  1. PANTOPRAZOL [Concomitant]
  2. PREDNISOLONE [Concomitant]
     Dosage: 20 MG, UNK
  3. SPIRIVA [Concomitant]
  4. FORTEO [Suspect]
     Indication: OSTEOPOROSIS
     Dosage: UNK, UNKNOWN
     Route: 058
  5. ATACAND [Concomitant]
  6. DEKRISTOL [Concomitant]
     Dosage: UNK, OTHER
  7. BRONCHORETARD [Concomitant]
  8. SYMBICORT [Concomitant]
  9. BERODUAL [Concomitant]

REACTIONS (5)
  - DYSPNOEA [None]
  - GENERALISED OEDEMA [None]
  - DEATH [None]
  - CHRONIC OBSTRUCTIVE PULMONARY DISEASE [None]
  - PNEUMONITIS [None]
